FAERS Safety Report 7105946-1 (Version None)
Quarter: 2010Q4

REPORT INFORMATION
  Report Type: 
  Country: None (occurrence: None)
  Receive Date: 20101110
  Receipt Date: 20101101
  Transmission Date: 20110411
  Serious: Yes (Death, Life-Threatening, Hospitalization)
  Sender: FDA-Public Use
  Company Number: 2009-04598

PATIENT
  Age: 67 Year
  Sex: Male
  Weight: 69.2 kg

DRUGS (3)
  1. VELCADE [Suspect]
     Indication: MULTIPLE MYELOMA
     Dosage: 2.2 MG, CYCLIC, INTRAVENOUS
     Route: 042
     Dates: start: 20090929, end: 20091006
  2. DOXORUBICIN HCL [Suspect]
     Indication: MULTIPLE MYELOMA
     Dosage: 60 MG, CYCLIC, INTRAVENOUS
     Route: 042
     Dates: start: 20090929, end: 20091003
  3. DEXAMETHASONE TAB [Suspect]
     Indication: MULTIPLE MYELOMA
     Dosage: 40 MG, ORAL
     Route: 048
     Dates: start: 20090929, end: 20091007

REACTIONS (6)
  - DECREASED APPETITE [None]
  - H1N1 INFLUENZA [None]
  - HYPONATRAEMIA [None]
  - LOWER RESPIRATORY TRACT INFECTION [None]
  - ORAL CANDIDIASIS [None]
  - PNEUMONIA [None]
